FAERS Safety Report 10229852 (Version 1)
Quarter: 2014Q2

REPORT INFORMATION
  Report Type: Spontaneous
  Country: US (occurrence: None)
  Receive Date: 20140610
  Receipt Date: 20140610
  Transmission Date: 20141212
  Serious: Yes (Life-Threatening, Hospitalization, Disabling)
  Sender: FDA-Public Use
  Company Number: None

PATIENT
  Age: 81 Year
  Sex: Female

DRUGS (18)
  1. INDOMETHACIN [Suspect]
     Indication: GOUT
     Dosage: 25 MG, 1 CAPSULE TWICE A DAY
     Dates: start: 20130701
  2. LEVOTHYROXINE [Concomitant]
  3. METOPROLOL TARTRATE [Concomitant]
  4. AMLODIPINE [Concomitant]
  5. FUROSEMIDE [Concomitant]
  6. HYDROCODONE-ACELAMINOPHEN [Concomitant]
  7. LOSARTIN [Concomitant]
  8. XARELTO [Concomitant]
  9. VITAMIN D3 [Concomitant]
  10. B 12 [Concomitant]
  11. PROBIOTICS [Concomitant]
  12. IRON [Concomitant]
  13. BLACK CHEER [Concomitant]
  14. BABYASPIRIN [Concomitant]
  15. HYDROCODONE [Concomitant]
  16. FUROSEMIDE [Concomitant]
  17. LEVOTHYROXINE [Concomitant]
  18. D3 [Concomitant]

REACTIONS (6)
  - Heart rate increased [None]
  - Feeling abnormal [None]
  - Weight increased [None]
  - Malaise [None]
  - Atrial fibrillation [None]
  - Treatment noncompliance [None]
